FAERS Safety Report 22651518 (Version 1)
Quarter: 2023Q2

REPORT INFORMATION
  Report Type: Spontaneous
  Country: US (occurrence: US)
  Receive Date: 20230628
  Receipt Date: 20230628
  Transmission Date: 20230721
  Serious: No
  Sender: FDA-Public Use
  Company Number: US-PFIZER INC-PV202300113763

PATIENT
  Age: 62 Year
  Sex: Female

DRUGS (1)
  1. CAMPTOSAR [Suspect]
     Active Substance: IRINOTECAN HYDROCHLORIDE
     Indication: Colon cancer
     Dosage: 180 MG/M2, CYCLIC (ONCE, 17 OF 20 CYCLES)
     Route: 042
     Dates: start: 20220110

REACTIONS (1)
  - Drug intolerance [Unknown]
